FAERS Safety Report 10775828 (Version 2)
Quarter: 2015Q1

REPORT INFORMATION
  Report Type: Spontaneous
  Country: ES (occurrence: ES)
  Receive Date: 20150209
  Receipt Date: 20150309
  Transmission Date: 20150721
  Serious: Yes (Hospitalization)
  Sender: FDA-Public Use
  Company Number: ES-BIAL, PORTELA + CA S.A.-BIAL-02793

PATIENT
  Age: 54 Year
  Sex: Female

DRUGS (13)
  1. ZEBINIX (ESLICARBAZEPINE ACETATE) [Suspect]
     Active Substance: ESLICARBAZEPINE ACETATE
     Indication: TRIGEMINAL NEURALGIA
     Route: 048
     Dates: start: 20141006, end: 2014
  2. DUPHALAC [Concomitant]
     Active Substance: LACTULOSE
  3. OMEPRAZOLE. [Concomitant]
     Active Substance: OMEPRAZOLE
  4. DIAZEPAM. [Concomitant]
     Active Substance: DIAZEPAM
     Route: 048
  5. ZEBINIX (ESLICARBAZEPINE ACETATE) [Suspect]
     Active Substance: ESLICARBAZEPINE ACETATE
     Indication: TRIGEMINAL NEURALGIA
     Dates: start: 2014, end: 20141217
  6. ZEBINIX (ESLICARBAZEPINE ACETATE) [Suspect]
     Active Substance: ESLICARBAZEPINE ACETATE
     Indication: TRIGEMINAL NEURALGIA
     Dates: start: 2014, end: 2014
  7. PALEXIA [Concomitant]
     Active Substance: TAPENTADOL HYDROCHLORIDE
     Route: 048
  8. LYRICA [Concomitant]
     Active Substance: PREGABALIN
     Route: 048
  9. BETAFERON [Concomitant]
     Active Substance: INTERFERON BETA-1B
  10. EUTIROX [Concomitant]
     Active Substance: LEVOTHYROXINE SODIUM
  11. VERSATIS [Concomitant]
     Active Substance: LIDOCAINE
     Route: 062
  12. ESCITALOPRAM [Concomitant]
     Active Substance: ESCITALOPRAM OXALATE
     Route: 048
  13. PHENYTOIN. [Concomitant]
     Active Substance: PHENYTOIN

REACTIONS (4)
  - Pancytopenia [Recovered/Resolved]
  - Off label use [None]
  - Septic shock [Recovered/Resolved]
  - Overdose [None]

NARRATIVE: CASE EVENT DATE: 2014
